FAERS Safety Report 8334725-2 (Version None)
Quarter: 2012Q2

REPORT INFORMATION
  Report Type: 
  Country: None (occurrence: None)
  Receive Date: 20120503
  Receipt Date: 20120419
  Transmission Date: 20120825
  Serious: Yes (Death, Hospitalization)
  Sender: FDA-Public Use
  Company Number: DE-ROCHE-1017164

PATIENT
  Age: 64 Year
  Sex: Female

DRUGS (13)
  1. METHOTREXATE [Suspect]
     Route: 065
     Dates: start: 20110401
  2. CERTOLIZUMAB PEGOL [Suspect]
     Indication: RHEUMATOID ARTHRITIS
     Route: 042
     Dates: start: 20100901, end: 20101001
  3. METHOTREXATE [Suspect]
     Indication: RHEUMATOID ARTHRITIS
     Route: 048
     Dates: start: 20040901, end: 20090501
  4. ABATACEPT [Suspect]
     Indication: RHEUMATOID ARTHRITIS
     Dates: start: 20090201, end: 20090301
  5. METHOTREXATE [Suspect]
     Route: 051
     Dates: start: 20090601, end: 20100201
  6. FOLSAN [Concomitant]
  7. MABTHERA [Suspect]
     Indication: RHEUMATOID ARTHRITIS
     Route: 065
     Dates: start: 20110107, end: 20110531
  8. PREDNISONE TAB [Concomitant]
  9. ADALIMUMAB [Suspect]
     Indication: RHEUMATOID ARTHRITIS
     Dates: start: 20090501, end: 20091101
  10. INFLIXIMAB [Suspect]
     Indication: RHEUMATOID ARTHRITIS
     Route: 042
     Dates: start: 20091101, end: 20100601
  11. ARCOXIA [Concomitant]
  12. ACTEMRA [Suspect]
     Indication: RHEUMATOID ARTHRITIS
     Dates: start: 20090301, end: 20090501
  13. METHOTREXATE [Suspect]
     Route: 058
     Dates: start: 20100901, end: 20101001

REACTIONS (4)
  - LUNG ADENOCARCINOMA [None]
  - VENOUS THROMBOSIS LIMB [None]
  - URINARY TRACT INFECTION [None]
  - LUNG ADENOCARCINOMA METASTATIC [None]
